FAERS Safety Report 16933827 (Version 3)
Quarter: 2019Q4

REPORT INFORMATION
  Report Type: Report from Study
  Country: GB (occurrence: GB)
  Receive Date: 20191018
  Receipt Date: 20191106
  Transmission Date: 20200122
  Serious: Yes (Hospitalization)
  Sender: FDA-Public Use
  Company Number: GB-ROCHE-2365337

PATIENT
  Age: 75 Year
  Sex: Female
  Weight: 64.8 kg

DRUGS (9)
  1. OXALIPLATIN. [Suspect]
     Active Substance: OXALIPLATIN
     Indication: DIFFUSE LARGE B-CELL LYMPHOMA
     Dosage: ON 28/AUG/2019, SHE RECEIVED THE MOST RECENT DOSE 180 MG OF OXALIPLATIN PRIOR TO SERIOUS ADVERSE EVE
     Route: 041
     Dates: start: 20190723
  2. GEMCITABINE. [Suspect]
     Active Substance: GEMCITABINE
     Indication: DIFFUSE LARGE B-CELL LYMPHOMA
     Dosage: ON 28/AUG/2019, SHE RECEIVED THE MOST RECENT DOSE 1710 MG OF GEMCITABINE PRIOR TO SERIOUS ADVERSE EV
     Route: 042
     Dates: start: 20190723
  3. FOLIC ACID. [Concomitant]
     Active Substance: FOLIC ACID
     Route: 065
  4. ALLOPURINOL. [Concomitant]
     Active Substance: ALLOPURINOL
     Route: 065
  5. ATEZOLIZUMAB. [Suspect]
     Active Substance: ATEZOLIZUMAB
     Indication: DIFFUSE LARGE B-CELL LYMPHOMA
     Dosage: DATE OF MOST RECENT DOSE 840 MG OF ATEZOLIZUMAB PRIOR TO SAE: 28/AUG/2019
     Route: 041
     Dates: start: 20190806
  6. ACICLOVIR [Concomitant]
     Active Substance: ACYCLOVIR
     Route: 065
  7. LANSOPRAZOLE. [Concomitant]
     Active Substance: LANSOPRAZOLE
     Route: 065
  8. RITUXIMAB. [Suspect]
     Active Substance: RITUXIMAB
     Indication: DIFFUSE LARGE B-CELL LYMPHOMA
     Dosage: ON 28/AUG/2019, SHE RECEIVED THE MOST RECENT DOSE 1400 MG OF RITUXIMAB SUBCUTANEOUS PRIOR TO SERIOUS
     Route: 041
     Dates: start: 20190723
  9. METFORMIN [Concomitant]
     Active Substance: METFORMIN HYDROCHLORIDE
     Route: 065

REACTIONS (4)
  - Pyrexia [Unknown]
  - Febrile neutropenia [Recovered/Resolved]
  - Pneumonia [Recovered/Resolved]
  - Pyrexia [Recovered/Resolved]

NARRATIVE: CASE EVENT DATE: 20190723
